FAERS Safety Report 6368724-7 (Version None)
Quarter: 2009Q3

REPORT INFORMATION
  Report Type: 
  Country: None (occurrence: None)
  Receive Date: 20090917
  Receipt Date: 20090917
  Transmission Date: 20100115
  Serious: Yes (Disabling)
  Sender: FDA-Public Use
  Company Number: None

PATIENT
  Age: 25 Year
  Sex: Male

DRUGS (4)
  1. RIFAMPIN [Suspect]
  2. ISONIAZID [Suspect]
  3. ATRIPLA [Suspect]
  4. BACTRIM [Suspect]

REACTIONS (3)
  - COAGULOPATHY [None]
  - HEPATIC ENCEPHALOPATHY [None]
  - HEPATITIS FULMINANT [None]
